FAERS Safety Report 4698204-6 (Version None)
Quarter: 2005Q2

REPORT INFORMATION
  Report Type: 
  Country: None (occurrence: None)
  Receive Date: 20050623
  Receipt Date: 20050616
  Transmission Date: 20051028
  Serious: Yes (Life-Threatening, Hospitalization, Disabling)
  Sender: FDA-Public Use
  Company Number: US-JNJFOC-20050405455

PATIENT
  Age: 31 Year
  Sex: Female
  Weight: 47.45 kg

DRUGS (1)
  1. DURAGESIC-100 [Suspect]
     Indication: DRUG USE FOR UNKNOWN INDICATION
     Route: 049

REACTIONS (15)
  - ACCIDENTAL EXPOSURE [None]
  - ANOXIC ENCEPHALOPATHY [None]
  - ANXIETY [None]
  - COGNITIVE DISORDER [None]
  - CONVULSION [None]
  - DYSTONIA [None]
  - FAECAL INCONTINENCE [None]
  - FALL [None]
  - GALLBLADDER POLYP [None]
  - LOSS OF CONSCIOUSNESS [None]
  - OVERDOSE [None]
  - RESPIRATORY ARREST [None]
  - URINARY INCONTINENCE [None]
  - URINARY TRACT INFECTION [None]
  - WERNICKE'S ENCEPHALOPATHY [None]
